FAERS Safety Report 8977778 (Version 1)
Quarter: 2012Q4

REPORT INFORMATION
  Report Type: 
  Country: US (occurrence: US)
  Receive Date: 20121219
  Receipt Date: 20121219
  Transmission Date: 20130627
  Serious: Yes (Hospitalization)
  Sender: FDA-Public Use
  Company Number: US-BAYER-2012-131904

PATIENT
  Age: 41 Year
  Sex: Female

DRUGS (10)
  1. YAZ [Suspect]
  2. GIANVI [Suspect]
  3. YASMIN [Suspect]
  4. ZOLPIDEM [Concomitant]
  5. ALLEGRA [Concomitant]
     Indication: MULTIPLE ALLERGIES
     Dosage: 180 mg,  as necessary
  6. MELATONIN [Concomitant]
  7. HYDROCODONE-ACET [Concomitant]
     Dosage: 7.5/325
  8. ADVIL [Concomitant]
     Dosage: UNK
     Dates: start: 20120102
  9. VITAMIN K [Concomitant]
  10. ALBUTEROL INHALER [Concomitant]
     Indication: RESPIRATORY DISORDER

REACTIONS (1)
  - Deep vein thrombosis [None]
